FAERS Safety Report 20580238 (Version 9)
Quarter: 2022Q2

REPORT INFORMATION
  Report Type: Report from Study
  Country: AU (occurrence: None)
  Receive Date: 20220310
  Receipt Date: 20220601
  Transmission Date: 20220721
  Serious: Yes (Hospitalization)
  Sender: FDA-Public Use
  Company Number: AU-Eisai Medical Research-EC-2022-110239

PATIENT
  Age: 52 Year
  Sex: Male
  Weight: 88.9 kg

DRUGS (15)
  1. LENVATINIB [Suspect]
     Active Substance: LENVATINIB
     Indication: Colorectal cancer metastatic
     Route: 048
     Dates: start: 20210608, end: 20220303
  2. PEMBROLIZUMAB [Suspect]
     Active Substance: PEMBROLIZUMAB
     Indication: Colorectal cancer metastatic
     Route: 041
     Dates: start: 20210608, end: 20220104
  3. PEMBROLIZUMAB [Suspect]
     Active Substance: PEMBROLIZUMAB
     Route: 041
     Dates: start: 20220222, end: 20220222
  4. PEMBROLIZUMAB [Suspect]
     Active Substance: PEMBROLIZUMAB
     Route: 041
     Dates: start: 20220414, end: 20220414
  5. OXYCODONE HYDROCHLORIDE [Concomitant]
     Active Substance: OXYCODONE HYDROCHLORIDE
     Dates: start: 201801
  6. OXYCONTIN [Concomitant]
     Active Substance: OXYCODONE HYDROCHLORIDE
     Dates: start: 201801
  7. OXAZEPAM [Concomitant]
     Active Substance: OXAZEPAM
     Dates: start: 201801
  8. ATIVAN [Concomitant]
     Active Substance: LORAZEPAM
     Dates: start: 201801
  9. DIETARY SUPPLEMENT [Concomitant]
     Active Substance: DIETARY SUPPLEMENT
     Dates: start: 20210629
  10. HYDROMORPHONE HYDROCHLORIDE [Concomitant]
     Active Substance: HYDROMORPHONE HYDROCHLORIDE
     Dates: start: 20211123
  11. METARAMINOL [Concomitant]
     Active Substance: METARAMINOL
     Dates: start: 20220303, end: 20220303
  12. KETAMINE [Concomitant]
     Active Substance: KETAMINE
     Dates: start: 20220303, end: 20220303
  13. ACETAMINOPHEN [Concomitant]
     Active Substance: ACETAMINOPHEN
     Dates: start: 20220303, end: 20220303
  14. CLINDAMYCIN [Concomitant]
     Active Substance: CLINDAMYCIN
     Dates: start: 20220303, end: 20220303
  15. MEROPENEM [Concomitant]
     Active Substance: MEROPENEM
     Dates: start: 20220303, end: 20220303

REACTIONS (1)
  - Rectal perforation [Recovered/Resolved]

NARRATIVE: CASE EVENT DATE: 20220303
